FAERS Safety Report 9216118 (Version 2)
Quarter: 2013Q2

REPORT INFORMATION
  Report Type: Spontaneous
  Country: GB (occurrence: None)
  Receive Date: 20130402
  Receipt Date: 20130402
  Transmission Date: 20140414
  Serious: Yes (Life-Threatening, Hospitalization)
  Sender: FDA-Public Use
  Company Number: AUR-APL-2013-02548

PATIENT
  Age: 79 Year
  Sex: Male

DRUGS (8)
  1. CITALOPRAM (CITALOPRAM) [Suspect]
     Indication: DEPRESSION
     Route: 048
  2. ASPIRIN (ACETYLSALICYLIC ACID) [Suspect]
     Indication: MYOCARDIAL ISCHAEMIA
     Route: 048
     Dates: end: 20130307
  3. BENPERIDOL (BENPERIDOL) [Concomitant]
  4. CETIRIZINE (CETIRIZINE) [Concomitant]
  5. LACTULOSE (LACTULOSE) [Concomitant]
  6. MULTIVITAMN (VIGRAN) [Concomitant]
  7. OMEPRAZOLE (OMEPRAZOLE) [Concomitant]
  8. PARACETAMOL (PARACETAMOL) [Concomitant]

REACTIONS (2)
  - Normochromic normocytic anaemia [None]
  - Acute myocardial infarction [None]
